FAERS Safety Report 11176416 (Version 1)
Quarter: 2015Q2

REPORT INFORMATION
  Report Type: Spontaneous
  Country: US (occurrence: US)
  Receive Date: 20150610
  Receipt Date: 20150610
  Transmission Date: 20150821
  Serious: Yes (Other)
  Sender: FDA-Public Use
  Company Number: US-PFIZER INC-2015191716

PATIENT
  Age: 51 Year
  Sex: Male

DRUGS (1)
  1. SILDENAFIL CITRATE. [Suspect]
     Active Substance: SILDENAFIL CITRATE
     Indication: ERECTILE DYSFUNCTION
     Dosage: 100 MG, AS NEEDED

REACTIONS (6)
  - Mental impairment [Unknown]
  - Mood altered [Unknown]
  - Feeling drunk [Unknown]
  - Activities of daily living impaired [Unknown]
  - Headache [Unknown]
  - Dyspepsia [Unknown]
